FAERS Safety Report 8326580 (Version 3)
Quarter: 2012Q4

REPORT INFORMATION
  Report Type: 
  Country: US (occurrence: US)
  Receive Date: 20120109
  Receipt Date: 20121112
  Transmission Date: 20130627
  Serious: Yes (Hospitalization, Other)
  Sender: FDA-Public Use
  Company Number: US-ELI_LILLY_AND_COMPANY-US201201000949

PATIENT
  Sex: Female

DRUGS (2)
  1. FORTEO [Suspect]
     Indication: OSTEOPOROSIS
     Dosage: 20 ug, qd
     Route: 065
     Dates: start: 20110124, end: 20111111
  2. FORTEO [Suspect]
     Dosage: 20 ug, qd
     Route: 065
     Dates: start: 20111111

REACTIONS (5)
  - Speech disorder [Unknown]
  - Tremor [Unknown]
  - Fall [Unknown]
  - Fracture [Unknown]
  - Pneumonia [Unknown]
